FAERS Safety Report 4926332-6 (Version None)
Quarter: 2006Q1

REPORT INFORMATION
  Report Type: 
  Country: None (occurrence: None)
  Receive Date: 20060228
  Receipt Date: 20051101
  Transmission Date: 20060701
  Serious: No
  Sender: FDA-Public Use
  Company Number: US-GLAXOSMITHKLINE-A0580503A

PATIENT
  Age: 33 Year
  Sex: Female

DRUGS (2)
  1. LAMICTAL [Suspect]
     Indication: BIPOLAR DISORDER
     Route: 048
     Dates: start: 20050811, end: 20050901
  2. GEODON [Concomitant]
     Dosage: 60MG TWICE PER DAY
     Route: 048
     Dates: start: 20050715, end: 20050926

REACTIONS (1)
  - RASH MACULO-PAPULAR [None]
